FAERS Safety Report 11441411 (Version 3)
Quarter: 2015Q3

REPORT INFORMATION
  Report Type: Report from Study
  Country: JP (occurrence: JP)
  Receive Date: 20150901
  Receipt Date: 20150907
  Transmission Date: 20151125
  Serious: Yes (Other)
  Sender: FDA-Public Use
  Company Number: JP-TEVA-589549ISR

PATIENT
  Age: 66 Year
  Sex: Female

DRUGS (38)
  1. EPIRUBICIN [Suspect]
     Active Substance: EPIRUBICIN
     Indication: BREAST CANCER
     Dosage: 100 MG/M2 DAILY;
     Route: 065
     Dates: start: 20141120, end: 20141120
  2. DEXART [Concomitant]
     Active Substance: DEXAMETHASONE SODIUM PHOSPHATE
     Dosage: 1.65 MILLIGRAM DAILY;
     Route: 042
     Dates: start: 20140115, end: 20140115
  3. EURODIN [Concomitant]
     Active Substance: ESTAZOLAM
     Indication: INSOMNIA
     Dosage: 2 MILLIGRAM DAILY; ONGOING
     Route: 048
  4. DEXART [Concomitant]
     Active Substance: DEXAMETHASONE SODIUM PHOSPHATE
     Dosage: 6.6 MILLIGRAM DAILY;
     Route: 042
     Dates: start: 20141211, end: 20141211
  5. DEXART [Concomitant]
     Active Substance: DEXAMETHASONE SODIUM PHOSPHATE
     Dosage: 1.65 MILLIGRAM DAILY;
     Route: 042
     Dates: start: 20140102, end: 20140102
  6. FILGRASTIM BS INJ. ^NK^ [Suspect]
     Active Substance: FILGRASTIM
     Dosage: 75 MCG/BODY
     Route: 058
     Dates: start: 20141019, end: 20141021
  7. 5-FU [Suspect]
     Active Substance: FLUOROURACIL
     Indication: BREAST CANCER
     Dosage: 500 MG/M2 DAILY;
     Route: 042
     Dates: start: 20141120, end: 20141120
  8. TRAMAL [Concomitant]
     Active Substance: TRAMADOL
     Indication: SPINAL OSTEOARTHRITIS
     Dosage: 200 MILLIGRAM DAILY; CONTINUING
     Route: 048
     Dates: start: 20140925
  9. HERCEPTIN [Concomitant]
     Active Substance: TRASTUZUMAB
     Dosage: 2 MG/KG DAILY;
     Route: 042
     Dates: start: 20150205, end: 20150205
  10. HERCEPTIN [Concomitant]
     Active Substance: TRASTUZUMAB
     Dosage: 2 MG/KG DAILY;
     Route: 042
     Dates: start: 20150212, end: 20150212
  11. HERCEPTIN [Concomitant]
     Active Substance: TRASTUZUMAB
     Indication: BREAST CANCER
     Dosage: 6 MG/KG DAILY;
     Route: 042
     Dates: start: 20141211, end: 20141211
  12. HERCEPTIN [Concomitant]
     Active Substance: TRASTUZUMAB
     Dosage: 2 MG/KG DAILY;
     Route: 042
     Dates: start: 20150102, end: 20150102
  13. DEXART [Concomitant]
     Active Substance: DEXAMETHASONE SODIUM PHOSPHATE
     Dosage: 1.65 MILLIGRAM DAILY;
     Route: 042
     Dates: start: 20140129, end: 20140129
  14. FILGRASTIM BS INJ. ^NK^ [Suspect]
     Active Substance: FILGRASTIM
     Indication: NEUTROPENIA
     Dosage: 75 MCG/BODY
     Route: 058
     Dates: start: 20141001, end: 20141003
  15. FILGRASTIM BS INJ. ^NK^ [Suspect]
     Active Substance: FILGRASTIM
     Dosage: 75 MCG/BODY
     Route: 058
     Dates: start: 20141203, end: 20141205
  16. CYCLOPHOSPHAMIDE HYDRATE [Suspect]
     Active Substance: CYCLOPHOSPHAMIDE
     Indication: BREAST CANCER
     Dosage: 500 MG/M2 DAILY;
     Route: 042
     Dates: start: 20141120, end: 20141120
  17. DEXART [Concomitant]
     Active Substance: DEXAMETHASONE SODIUM PHOSPHATE
     Dosage: 3.3 MILLIGRAM DAILY;
     Route: 042
     Dates: start: 20141218, end: 20141218
  18. PACLITAXEL. [Suspect]
     Active Substance: PACLITAXEL
     Indication: BREAST CANCER
     Dosage: 80 MG/M2 DAILY;
     Route: 042
     Dates: start: 20150102, end: 20150102
  19. PACLITAXEL. [Suspect]
     Active Substance: PACLITAXEL
     Dosage: 80 MG/M2 DAILY;
     Route: 042
     Dates: start: 20141218, end: 20141218
  20. CEFTRIAXONE SODIUM HYDRATE [Concomitant]
     Active Substance: CEFTRIAXONE SODIUM
     Indication: FEBRILE NEUTROPENIA
     Dosage: 1 GRAM DAILY;
     Route: 042
     Dates: start: 20141111, end: 20141111
  21. ETIZOLAM [Concomitant]
     Active Substance: ETIZOLAM
     Indication: INSOMNIA
     Dosage: 1 MILLIGRAM DAILY; ONGOING
     Route: 048
  22. HERCEPTIN [Concomitant]
     Active Substance: TRASTUZUMAB
     Dosage: 2 MG/KG DAILY;
     Route: 042
     Dates: start: 20141225, end: 20141225
  23. HERCEPTIN [Concomitant]
     Active Substance: TRASTUZUMAB
     Dosage: 2 MG/KG DAILY;
     Route: 042
     Dates: start: 20150122, end: 20150122
  24. FILGRASTIM BS INJ. ^NK^ [Suspect]
     Active Substance: FILGRASTIM
     Dosage: 75 MCG/BODY
     Route: 058
     Dates: start: 20141106, end: 20141107
  25. FILGRASTIM BS INJ. ^NK^ [Suspect]
     Active Substance: FILGRASTIM
     Dosage: 75 MCG/BODY
     Route: 058
     Dates: start: 20141111, end: 20141113
  26. PACLITAXEL. [Suspect]
     Active Substance: PACLITAXEL
     Dosage: 64 MG/M2 DAILY;
     Route: 042
     Dates: start: 20150115, end: 20150115
  27. PACLITAXEL. [Suspect]
     Active Substance: PACLITAXEL
     Dosage: 64 MG/M2 DAILY;
     Route: 042
     Dates: start: 20150129, end: 20150129
  28. CRAVIT [Concomitant]
     Active Substance: LEVOFLOXACIN
     Indication: FEBRILE NEUTROPENIA
     Dosage: 500 MILLIGRAM DAILY;
     Route: 048
     Dates: start: 20141019, end: 20141025
  29. CRAVIT [Concomitant]
     Active Substance: LEVOFLOXACIN
     Dosage: 500 MILLIGRAM DAILY;
     Route: 048
     Dates: start: 20141104, end: 20141110
  30. CRAVIT [Concomitant]
     Active Substance: LEVOFLOXACIN
     Dosage: 500 MILLIGRAM DAILY;
     Route: 048
     Dates: start: 20141202, end: 20141208
  31. HERCEPTIN [Concomitant]
     Active Substance: TRASTUZUMAB
     Dosage: 2 MG/KG DAILY;
     Route: 042
     Dates: start: 20141218, end: 20141218
  32. HERCEPTIN [Concomitant]
     Active Substance: TRASTUZUMAB
     Dosage: 2 MG/KG DAILY;
     Route: 042
     Dates: start: 20150108, end: 20150108
  33. HERCEPTIN [Concomitant]
     Active Substance: TRASTUZUMAB
     Dosage: 2 MG/KG DAILY;
     Route: 042
     Dates: start: 20150115, end: 20150115
  34. HERCEPTIN [Concomitant]
     Active Substance: TRASTUZUMAB
     Dosage: 2 MG/KG DAILY;
     Route: 042
     Dates: start: 20150129, end: 20150129
  35. PACLITAXEL. [Suspect]
     Active Substance: PACLITAXEL
     Dosage: 64 MG/M2 DAILY;
     Route: 042
     Dates: start: 20150212, end: 20150212
  36. PACLITAXEL. [Suspect]
     Active Substance: PACLITAXEL
     Dosage: 80 MG/M2 DAILY;
     Route: 042
     Dates: start: 20141211, end: 20141211
  37. CRAVIT [Concomitant]
     Active Substance: LEVOFLOXACIN
     Dosage: 500 MILLIGRAM DAILY;
     Route: 048
     Dates: start: 20141202, end: 20141208
  38. DEXART [Concomitant]
     Active Substance: DEXAMETHASONE SODIUM PHOSPHATE
     Dosage: 1.65 MILLIGRAM DAILY;
     Route: 042
     Dates: start: 20140212, end: 20140212

REACTIONS (1)
  - Anaemia [Not Recovered/Not Resolved]

NARRATIVE: CASE EVENT DATE: 20141127
